FAERS Safety Report 14702901 (Version 2)
Quarter: 2018Q2

REPORT INFORMATION
  Report Type: Report from Study
  Country: US (occurrence: US)
  Receive Date: 20180402
  Receipt Date: 20180409
  Transmission Date: 20180711
  Serious: No
  Sender: FDA-Public Use
  Company Number: US-ALEXION PHARMACEUTICALS INC.-A201802793

PATIENT
  Sex: Female

DRUGS (1)
  1. STRENSIQ [Suspect]
     Active Substance: ASFOTASE ALFA
     Indication: HYPOPHOSPHATASIA
     Dosage: UNK
     Route: 065

REACTIONS (11)
  - Injection site discolouration [Not Recovered/Not Resolved]
  - Injection site swelling [Recovering/Resolving]
  - Muscle twitching [Unknown]
  - Injection site pruritus [Recovering/Resolving]
  - Tendon pain [Unknown]
  - Impaired healing [Unknown]
  - Muscle spasms [Unknown]
  - Pain in extremity [Unknown]
  - Injection site reaction [Recovering/Resolving]
  - Injection site pain [Unknown]
  - Fatigue [Unknown]
